FAERS Safety Report 18457806 (Version 1)
Quarter: 2020Q4

REPORT INFORMATION
  Report Type: Report from Study
  Country: US (occurrence: US)
  Receive Date: 20201103
  Receipt Date: 20201103
  Transmission Date: 20210114
  Serious: Yes (Death, Life-Threatening, Other)
  Sender: FDA-Public Use
  Company Number: NVSC2020US292237

PATIENT
  Age: 17 Year
  Sex: Male

DRUGS (3)
  1. CYCLOPHOSPHAMIDE. [Concomitant]
     Active Substance: CYCLOPHOSPHAMIDE
     Indication: CHEMOTHERAPY
     Dosage: UNK
     Route: 065
  2. FLUDARABINE [Concomitant]
     Active Substance: FLUDARABINE PHOSPHATE
     Indication: CHEMOTHERAPY
     Dosage: UNK
     Route: 065
  3. KYMRIAH [Suspect]
     Active Substance: TISAGENLECLEUCEL
     Indication: ACUTE LYMPHOCYTIC LEUKAEMIA
     Dosage: UNK
     Route: 041
     Dates: start: 20200806

REACTIONS (23)
  - Haemophagocytic lymphohistiocytosis [Unknown]
  - Cytokine release syndrome [Not Recovered/Not Resolved]
  - Nephropathy toxic [Unknown]
  - Hemiparesis [Unknown]
  - Platelet count decreased [Not Recovered/Not Resolved]
  - Hypoxia [Unknown]
  - Paraparesis [Unknown]
  - Motor dysfunction [Unknown]
  - Haematocrit decreased [Unknown]
  - Cardiotoxicity [Unknown]
  - Hepatotoxicity [Unknown]
  - Death [Fatal]
  - Hypotension [Unknown]
  - Pulmonary toxicity [Unknown]
  - White blood cell count decreased [Unknown]
  - Aphasia [Unknown]
  - Treatment failure [Unknown]
  - Neurotoxicity [Not Recovered/Not Resolved]
  - Myoclonic epilepsy [Unknown]
  - Pyrexia [Unknown]
  - Brain oedema [Unknown]
  - Depressed level of consciousness [Unknown]
  - Haemoglobin decreased [Unknown]
